FAERS Safety Report 4485310-4 (Version None)
Quarter: 2004Q4

REPORT INFORMATION
  Report Type: 
  Country: None (occurrence: None)
  Receive Date: 20041025
  Receipt Date: 20041025
  Transmission Date: 20050328
  Serious: Yes (Other)
  Sender: FDA-Public Use
  Company Number: None

PATIENT
  Age: 11 Year
  Sex: Male
  Weight: 62.1428 kg

DRUGS (3)
  1. CATAPRES [Suspect]
     Indication: ABNORMAL BEHAVIOUR
     Dosage: SEE IMAGE
  2. CATAPRES [Suspect]
     Indication: AUTISM
     Dosage: SEE IMAGE
  3. SEROQUEL [Concomitant]

REACTIONS (5)
  - AGGRESSION [None]
  - DRUG INEFFECTIVE [None]
  - INJURY [None]
  - PHARMACEUTICAL PRODUCT COMPLAINT [None]
  - SELF INJURIOUS BEHAVIOUR [None]
